FAERS Safety Report 13305948 (Version 1)
Quarter: 2017Q1

REPORT INFORMATION
  Report Type: Report from Study
  Country: IL (occurrence: IL)
  Receive Date: 20170308
  Receipt Date: 20170308
  Transmission Date: 20170428
  Serious: Yes (Other)
  Sender: FDA-Public Use
  Company Number: IL-TEVA-747390ISR

PATIENT
  Age: 12 Year
  Sex: Female

DRUGS (1)
  1. COPAXONE [Suspect]
     Active Substance: GLATIRAMER ACETATE
     Indication: RETT SYNDROME
     Dosage: 20 MILLIGRAM DAILY;
     Route: 058

REACTIONS (3)
  - Apnoea [Recovered/Resolved]
  - Seizure [Recovered/Resolved]
  - Oedema [Recovered/Resolved]
